FAERS Safety Report 5169171-6 (Version None)
Quarter: 2006Q4

REPORT INFORMATION
  Report Type: 
  Country: None (occurrence: None)
  Receive Date: 20061211
  Receipt Date: 20061201
  Transmission Date: 20070319
  Serious: Yes (Hospitalization, Other)
  Sender: FDA-Public Use
  Company Number: 2006PK02545

PATIENT
  Age: 19449 Day
  Sex: Female

DRUGS (2)
  1. ARIMIDEX [Suspect]
     Indication: BREAST CANCER
     Route: 048
     Dates: start: 20041201
  2. NOLVADEX [Suspect]
     Indication: BREAST CANCER

REACTIONS (4)
  - ADENOMYOSIS [None]
  - METRORRHAGIA [None]
  - OVARIAN CYST [None]
  - UTERINE POLYP [None]
